FAERS Safety Report 10724477 (Version 1)
Quarter: 2015Q1

REPORT INFORMATION
  Report Type: Spontaneous
  Country: US (occurrence: None)
  Receive Date: 20150116
  Receipt Date: 20150116
  Transmission Date: 20150721
  Serious: No
  Sender: FDA-Public Use
  Company Number: None

PATIENT
  Age: 52 Year
  Sex: Female
  Weight: 95.26 kg

DRUGS (5)
  1. HAIR REGROWTH TREATMENT FOR WOMEN [Suspect]
     Active Substance: MINOXIDIL
     Indication: ALOPECIA
     Route: 061
     Dates: start: 20140901, end: 201411
  2. ALEVE [Concomitant]
     Active Substance: NAPROXEN SODIUM
  3. ALMOPHIDINE [Concomitant]
  4. HYDROCHLORITHIADE [Concomitant]
  5. HAIR REGROWTH TREATMENT FOR WOMEN [Suspect]
     Active Substance: MINOXIDIL
     Indication: HAIR GROWTH ABNORMAL
     Route: 061
     Dates: start: 20140901, end: 201411

REACTIONS (1)
  - Alopecia [None]

NARRATIVE: CASE EVENT DATE: 201411
